FAERS Safety Report 24614193 (Version 1)
Quarter: 2024Q4

REPORT INFORMATION
  Report Type: Spontaneous
  Country: DE (occurrence: DE)
  Receive Date: 20241113
  Receipt Date: 20241113
  Transmission Date: 20250115
  Serious: Yes (Hospitalization)
  Sender: AUROBINDO
  Company Number: DE-SAMSUNG BIOEPIS-SB-2024-32110

PATIENT
  Age: 76 Year
  Sex: Male
  Weight: 81 kg

DRUGS (6)
  1. DOCETAXEL [Suspect]
     Active Substance: DOCETAXEL
     Indication: HER2 positive gastric cancer
     Dosage: 70 MILLIGRAM (50 MG/M2, IV, D1/D15/D29 AND D43 PRE-AND POST OP)
     Route: 042
     Dates: start: 20240318
  2. LEUCOVORIN [Suspect]
     Active Substance: LEUCOVORIN\LEUCOVORIN CALCIUM
     Indication: HER2 positive gastric cancer
     Dosage: 275 MILLIGRAM (200 MG/M2, IV, D1/D15/D29 AND D43 PRE-AND POST OP)
     Route: 042
     Dates: start: 20240318
  3. OXALIPLATIN [Suspect]
     Active Substance: OXALIPLATIN
     Indication: HER2 positive gastric cancer
     Dosage: 120 MILLIGRAM (85 MG/M2, IV, D1/D15/D29 AND D43 PRE-AND POST OP)
     Route: 042
     Dates: start: 20240318
  4. ONTRUZANT [Suspect]
     Active Substance: TRASTUZUMAB-DTTB
     Indication: HER2 positive gastric cancer
     Dosage: 483 MILLIGRAM (D1: 8 MG/KG, IV; 6 MG/KG IV D22/D43 PRE-AND POST OP, AFTERWARDS 6 MG/KG IV D1/ Q3W)
     Route: 042
     Dates: start: 20240318
  5. PEMBROLIZUMAB [Suspect]
     Active Substance: PEMBROLIZUMAB
     Indication: HER2 positive gastric cancer
     Dosage: 200 MILLIGRAM (200 MG FLAT DOSE, D1/D22/D43 POST OP, AFTERWARDS D1 Q3W)
     Route: 042
     Dates: start: 20240318
  6. FLUOROURACIL [Suspect]
     Active Substance: FLUOROURACIL
     Indication: HER2 positive gastric cancer
     Dosage: 3650 MILLIGRAM (2600 MG/M2, IV, D1/D15/D29 AND D43 PRE-AND POST OP)
     Route: 042
     Dates: start: 20240318

REACTIONS (2)
  - Urinary tract infection [Recovered/Resolved]
  - Off label use [Unknown]

NARRATIVE: CASE EVENT DATE: 20241017
